FAERS Safety Report 11409057 (Version 1)
Quarter: 2015Q3

REPORT INFORMATION
  Report Type: Spontaneous
  Country: GB (occurrence: GB)
  Receive Date: 20150824
  Receipt Date: 20150824
  Transmission Date: 20151125
  Serious: Yes (Hospitalization)
  Sender: FDA-Public Use
  Company Number: GB-UCBSA-2015026025

PATIENT
  Age: 73 Year
  Sex: Male

DRUGS (1)
  1. NEUPRO [Suspect]
     Active Substance: ROTIGOTINE
     Indication: PRODUCT USED FOR UNKNOWN INDICATION
     Dosage: 3 MG, ONCE DAILY (QD)
     Route: 062
     Dates: start: 2014

REACTIONS (4)
  - Drug ineffective [Unknown]
  - Insomnia [Unknown]
  - Prostatic operation [Unknown]
  - Off label use [Unknown]

NARRATIVE: CASE EVENT DATE: 2014
